FAERS Safety Report 5246196-3 (Version None)
Quarter: 2007Q1

REPORT INFORMATION
  Report Type: 
  Country: None (occurrence: None)
  Receive Date: 20070220
  Receipt Date: 20070207
  Transmission Date: 20070707
  Serious: Yes (Disabling, Other)
  Sender: FDA-Public Use
  Company Number: 2007EU000358

PATIENT
  Age: 62 Year
  Sex: Female

DRUGS (3)
  1. VESICARE [Suspect]
     Indication: MICTURITION URGENCY
     Dosage: 5 MG, UID/QD, ORAL
     Route: 048
     Dates: start: 20061123, end: 20061221
  2. LEVOTHYROXINE SODIUM [Concomitant]
  3. IMIPRAMINE [Concomitant]

REACTIONS (2)
  - CONFUSIONAL STATE [None]
  - URINARY RETENTION [None]
